FAERS Safety Report 7504776-6 (Version None)
Quarter: 2011Q2

REPORT INFORMATION
  Report Type: 
  Country: None (occurrence: None)
  Receive Date: 20110525
  Receipt Date: 20110410
  Transmission Date: 20111010
  Serious: No
  Sender: FDA-Public Use
  Company Number: US-AMGEN-USASP2011018989

PATIENT
  Age: 69 Year
  Sex: Female

DRUGS (12)
  1. MUCINEX [Concomitant]
  2. ALLOPURINOL [Concomitant]
  3. SIMVASTATIN [Concomitant]
  4. METOPROLOL TARTRATE [Concomitant]
  5. OXYCONTIN [Concomitant]
  6. NORVASC [Concomitant]
  7. ARANESP [Suspect]
     Indication: ANAEMIA OF MALIGNANT DISEASE
     Dosage: 600 A?G, QMO
  8. MORPHINE [Concomitant]
  9. COLACE [Concomitant]
  10. VITAMINS                           /00067501/ [Concomitant]
  11. COUMADIN [Concomitant]
  12. HYDROMORPHONE HCL [Concomitant]

REACTIONS (5)
  - CHEST PAIN [None]
  - RADIATION INJURY [None]
  - MYALGIA [None]
  - STAPHYLOCOCCAL INFECTION [None]
  - NECK PAIN [None]
